FAERS Safety Report 5215226-7 (Version None)
Quarter: 2007Q1

REPORT INFORMATION
  Report Type: 
  Country: None (occurrence: None)
  Receive Date: 20070122
  Receipt Date: 20070111
  Transmission Date: 20070707
  Serious: Yes (Other)
  Sender: FDA-Public Use
  Company Number: CA-PFIZER INC-2007004209

PATIENT
  Age: 59 Year
  Sex: Female

DRUGS (1)
  1. NEURONTIN [Suspect]
     Route: 048

REACTIONS (2)
  - PURPURA [None]
  - PURPURA SENILE [None]
